FAERS Safety Report 7444568-X (Version None)
Quarter: 2011Q2

REPORT INFORMATION
  Report Type: 
  Country: None (occurrence: None)
  Receive Date: 20110429
  Receipt Date: 20110426
  Transmission Date: 20111010
  Serious: Yes (Hospitalization, Disabling)
  Sender: FDA-Public Use
  Company Number: GB-PFIZER INC-2011090261

PATIENT
  Age: 56 Year
  Sex: Male

DRUGS (1)
  1. SILDENAFIL CITRATE [Suspect]
     Dosage: UNK
     Route: 048

REACTIONS (1)
  - ISCHAEMIC STROKE [None]
